FAERS Safety Report 5332614-9 (Version None)
Quarter: 2007Q2

REPORT INFORMATION
  Report Type: 
  Country: None (occurrence: None)
  Receive Date: 20070523
  Receipt Date: 20070511
  Transmission Date: 20071010
  Serious: Yes (Life-Threatening)
  Sender: FDA-Public Use
  Company Number: JP-PFIZER INC-2007040195

PATIENT
  Age: 60 Year
  Sex: Female

DRUGS (1)
  1. IRINOTECAN HCL [Suspect]
     Indication: COLON CANCER RECURRENT
     Route: 042
     Dates: start: 20070426, end: 20070426

REACTIONS (2)
  - ERYTHEMA [None]
  - LOSS OF CONSCIOUSNESS [None]
